FAERS Safety Report 11058501 (Version 1)
Quarter: 2015Q2

REPORT INFORMATION
  Report Type: Spontaneous
  Country: US (occurrence: None)
  Receive Date: 20150422
  Receipt Date: 20150422
  Transmission Date: 20150821
  Serious: Yes (Disabling, Other)
  Sender: FDA-Public Use
  Company Number: None

PATIENT
  Age: 72 Year
  Sex: Female
  Weight: 79.83 kg

DRUGS (15)
  1. POT CHLOR POTASSIUM [Concomitant]
  2. ASPIRIN. [Concomitant]
     Active Substance: ASPIRIN
  3. DULERA [Concomitant]
     Active Substance: FORMOTEROL FUMARATE DIHYDRATE\MOMETASONE FUROATE
  4. ALBUTERAL NEBULIZER [Concomitant]
  5. OMEGA-3 FISH OIL [Concomitant]
     Active Substance: FISH OIL\OMEGA-3 FATTY ACIDS
  6. TRIAMT/HCTZ [Concomitant]
     Active Substance: HYDROCHLOROTHIAZIDE\TRIAMTERENE
  7. GLUCOSAMINE CHONDROITIN [Concomitant]
     Active Substance: CHONDROITIN SULFATE (BOVINE)\GLUCOSAMINE HYDROCHLORIDE
  8. PONARIS [Concomitant]
     Active Substance: CAJUPUT OIL\EUCALYPTUS OIL\PEPPERMINT OIL
  9. ZETIA [Suspect]
     Active Substance: EZETIMIBE
     Indication: BLOOD CHOLESTEROL INCREASED
     Route: 048
     Dates: start: 20150304, end: 20150402
  10. LOSARTAN [Concomitant]
     Active Substance: LOSARTAN
  11. ALBUTERAL INHALER [Concomitant]
  12. SLO-MAG [Concomitant]
  13. GAS-X [Concomitant]
     Active Substance: DIMETHICONE
  14. DIARY DIGESTIVE SUPPLEMENT [Concomitant]
  15. AZELASTINE [Concomitant]
     Active Substance: AZELASTINE

REACTIONS (4)
  - Blood glucose increased [None]
  - Arthralgia [None]
  - Diarrhoea [None]
  - Breast haemorrhage [None]

NARRATIVE: CASE EVENT DATE: 20150325
